FAERS Safety Report 25758376 (Version 1)
Quarter: 2025Q3

REPORT INFORMATION
  Report Type: Spontaneous
  Country: US (occurrence: US)
  Receive Date: 20250904
  Receipt Date: 20250904
  Transmission Date: 20251020
  Serious: Yes (Hospitalization)
  Sender: RANBAXY
  Company Number: US-SUN PHARMACEUTICAL INDUSTRIES LTD-2025R1-519016

PATIENT
  Sex: Female
  Weight: 93.878 kg

DRUGS (1)
  1. LENALIDOMIDE [Suspect]
     Active Substance: LENALIDOMIDE
     Indication: Follicular lymphoma
     Dosage: 20 MILLIGRAM, OD; FOR 21 DAYS ON, 7 DAYS OFF OF EACH 28 DAYS CYCLE
     Route: 048
     Dates: start: 20250613, end: 20250711

REACTIONS (1)
  - Staphylococcal infection [Recovering/Resolving]
